FAERS Safety Report 21336301 (Version 1)
Quarter: 2022Q3

REPORT INFORMATION
  Report Type: Spontaneous
  Country: US (occurrence: US)
  Receive Date: 20220915
  Receipt Date: 20220915
  Transmission Date: 20221027
  Serious: No
  Sender: FDA-Public Use
  Company Number: US-ORGANON-O2209USA000658

PATIENT
  Age: 22 Year
  Sex: Female

DRUGS (1)
  1. NEXPLANON [Suspect]
     Active Substance: ETONOGESTREL
     Indication: Contraception
     Dosage: ONCE EVERY 3 YEARS
     Route: 059
     Dates: start: 20200501

REACTIONS (3)
  - Pelvic pain [Not Recovered/Not Resolved]
  - Nausea [Not Recovered/Not Resolved]
  - Heavy menstrual bleeding [Not Recovered/Not Resolved]

NARRATIVE: CASE EVENT DATE: 20200601
